FAERS Safety Report 11101610 (Version 2)
Quarter: 2015Q3

REPORT INFORMATION
  Report Type: Report from Study
  Country: FR (occurrence: FR)
  Receive Date: 20150508
  Receipt Date: 20150817
  Transmission Date: 20151125
  Serious: Yes (Hospitalization, Other)
  Sender: FDA-Public Use
  Company Number: FR-009507513-2012SP027928

PATIENT
  Age: 13 Year
  Sex: Male
  Weight: 48 kg

DRUGS (9)
  1. TEMOZOLOMIDE. [Suspect]
     Active Substance: TEMOZOLOMIDE
     Dosage: 100 MG, ONCE
     Route: 065
     Dates: start: 20111121, end: 20111121
  2. TEMOZOLOMIDE. [Suspect]
     Active Substance: TEMOZOLOMIDE
     Dosage: 110 MG, QD
     Route: 065
     Dates: start: 20120123, end: 20120123
  3. BEVACIZUMAB [Suspect]
     Active Substance: BEVACIZUMAB
     Indication: MALIGNANT GLIOMA
     Dosage: 10 MG/KG, 1 IN 2 WK
     Route: 042
     Dates: start: 20111114
  4. TEMOZOLOMIDE. [Suspect]
     Active Substance: TEMOZOLOMIDE
     Dosage: 240 MG, QD
     Route: 065
     Dates: start: 20120124, end: 20120127
  5. TEMOZOLOMIDE. [Suspect]
     Active Substance: TEMOZOLOMIDE
     Dosage: 300 MG, QD
     Route: 065
     Dates: start: 20120221, end: 20120225
  6. BEVACIZUMAB [Suspect]
     Active Substance: BEVACIZUMAB
     Dosage: 10 MG/KG, ONCE
     Route: 042
     Dates: start: 20120320, end: 20120320
  7. TEMOZOLOMIDE. [Suspect]
     Active Substance: TEMOZOLOMIDE
     Indication: MALIGNANT GLIOMA
     Dosage: 110 MG, QD
     Route: 065
     Dates: start: 20111114, end: 20111227
  8. TEMOZOLOMIDE. [Suspect]
     Active Substance: TEMOZOLOMIDE
     Dosage: 300 MG, QD
     Route: 065
     Dates: start: 20120320, end: 20120324
  9. BEVACIZUMAB [Suspect]
     Active Substance: BEVACIZUMAB
     Dosage: 5 MG/KG, 1 IN 2 WK
     Route: 042
     Dates: start: 20120410, end: 20120503

REACTIONS (1)
  - Thrombosis in device [Recovered/Resolved]

NARRATIVE: CASE EVENT DATE: 20120327
